FAERS Safety Report 24202680 (Version 1)
Quarter: 2024Q3

REPORT INFORMATION
  Report Type: Spontaneous
  Country: US (occurrence: US)
  Receive Date: 20240813
  Receipt Date: 20240813
  Transmission Date: 20241016
  Serious: Yes (Hospitalization, Other)
  Sender: NOVO NORDISK
  Company Number: US-NOVOPROD-1266463

PATIENT
  Age: 73 Year
  Sex: Female

DRUGS (3)
  1. NOVOLIN R [Suspect]
     Active Substance: INSULIN HUMAN
     Indication: Type 2 diabetes mellitus
     Dosage: 12 IU, TID
     Route: 058
  2. LANTUS [Suspect]
     Active Substance: INSULIN GLARGINE
     Indication: Type 2 diabetes mellitus
     Dosage: 28 IU
  3. METFORMIN [Concomitant]
     Active Substance: METFORMIN HYDROCHLORIDE
     Indication: Type 2 diabetes mellitus
     Dosage: UNK

REACTIONS (10)
  - Limb injury [Recovered/Resolved]
  - Cataract [Not Recovered/Not Resolved]
  - Myocardial infarction [Recovered/Resolved]
  - Aneurysm [Not Recovered/Not Resolved]
  - Angioedema [Not Recovered/Not Resolved]
  - Hypertension [Recovered/Resolved]
  - Dyskinesia [Recovered/Resolved]
  - Somnolence [Not Recovered/Not Resolved]
  - Eye movement disorder [Recovered/Resolved]
  - Insomnia [Not Recovered/Not Resolved]

NARRATIVE: CASE EVENT DATE: 20210101
